FAERS Safety Report 5358283-X (Version None)
Quarter: 2007Q2

REPORT INFORMATION
  Report Type: 
  Country: None (occurrence: None)
  Receive Date: 20070613
  Receipt Date: 20070613
  Transmission Date: 20071010
  Serious: Yes (Hospitalization)
  Sender: FDA-Public Use
  Company Number: None

PATIENT
  Age: 35 Month
  Sex: Male
  Weight: 14.6512 kg

DRUGS (1)
  1. VANCOMYCIN [Suspect]
     Indication: SPLENIC ABSCESS
     Dosage: 200MG IN HOME PUMPS EVERY 8HR 50ML/HR. IV
     Route: 042
     Dates: start: 20070608

REACTIONS (5)
  - COUGH [None]
  - CYANOSIS [None]
  - HYPERHIDROSIS [None]
  - NAUSEA [None]
  - RASH [None]
